FAERS Safety Report 22001596 (Version 1)
Quarter: 2023Q1

REPORT INFORMATION
  Report Type: Spontaneous
  Country: FR (occurrence: FR)
  Receive Date: 20230216
  Receipt Date: 20230216
  Transmission Date: 20230418
  Serious: Yes (Hospitalization, Other)
  Sender: FDA-Public Use
  Company Number: None

PATIENT
  Age: 73 Year
  Sex: Male
  Weight: 81.8 kg

DRUGS (5)
  1. ELIQUIS [Suspect]
     Active Substance: APIXABAN
     Indication: Cerebrovascular accident prophylaxis
     Dosage: 5 MG
     Dates: start: 20230124
  2. CEFEPIME HYDROCHLORIDE [Suspect]
     Active Substance: CEFEPIME HYDROCHLORIDE
     Indication: Pseudomonas infection
     Dates: start: 20230120
  3. BISOPROLOL [Suspect]
     Active Substance: BISOPROLOL
     Indication: Atrial fibrillation
     Dosage: 2.5 MG
     Dates: start: 20230124
  4. TRESIBA [Suspect]
     Active Substance: INSULIN DEGLUDEC
     Indication: Type 2 diabetes mellitus
     Dosage: 80 UI
     Dates: start: 20230125
  5. LINEZOLID [Suspect]
     Active Substance: LINEZOLID
     Indication: Staphylococcal bacteraemia
     Route: 048
     Dates: start: 20230130, end: 20230201

REACTIONS (1)
  - Tonic clonic movements [Recovered/Resolved]

NARRATIVE: CASE EVENT DATE: 20230201
